FAERS Safety Report 24457831 (Version 1)
Quarter: 2024Q4

REPORT INFORMATION
  Report Type: Report from Study
  Country: US (occurrence: US)
  Receive Date: 20241018
  Receipt Date: 20241018
  Transmission Date: 20250114
  Serious: No
  Sender: ROCHE
  Company Number: US-ROCHE-3446084

PATIENT
  Age: 45 Year
  Sex: Male

DRUGS (7)
  1. CATHFLO ACTIVASE [Suspect]
     Active Substance: ALTEPLASE
     Indication: Haemorrhage intracranial
     Dosage: DATE OF TREATMENT: 06/APR/2023, 07/APR/2023, 14/APR/2023, 14/SEP/2023, 27/SEP/2023
     Route: 065
  2. CATHFLO ACTIVASE [Suspect]
     Active Substance: ALTEPLASE
     Dosage: DATE OF TREATMENT: 16/SEP/2023, 17/SEP/2023, 16/SEP/2023, 17/SEP/2023
     Route: 065
  3. CATHFLO ACTIVASE [Suspect]
     Active Substance: ALTEPLASE
     Dosage: DATE OF TREATMENT: 04/APR/2023
     Route: 065
  4. CATHFLO ACTIVASE [Suspect]
     Active Substance: ALTEPLASE
     Dosage: DATE OF TREATMENT: 08/APR/2023
     Route: 065
  5. CATHFLO ACTIVASE [Suspect]
     Active Substance: ALTEPLASE
     Dosage: DATE OF TREATMENT: 15/SEP/2023,
     Route: 065
  6. CATHFLO ACTIVASE [Suspect]
     Active Substance: ALTEPLASE
     Dosage: DATE OF TREATMENT: 05/APR/2023
     Route: 065
  7. CATHFLO ACTIVASE [Suspect]
     Active Substance: ALTEPLASE
     Dosage: DATE OF TREATMENT: 23/SEP/2023, 12/SEP/2023,
     Route: 065

REACTIONS (2)
  - Off label use [Unknown]
  - No adverse event [Unknown]
